FAERS Safety Report 8244142 (Version 2)
Quarter: 2012Q4

REPORT INFORMATION
  Report Type: 
  Country: TR (occurrence: TR)
  Receive Date: 20111115
  Receipt Date: 20121220
  Transmission Date: 20130627
  Serious: Yes (Death, Other)
  Sender: FDA-Public Use
  Company Number: TR-RANBAXY-2011RR-50288

PATIENT
  Age: 5 Year
  Sex: Male

DRUGS (14)
  1. RISPERIDONE [Suspect]
     Indication: AUTISM
     Dosage: 0.25 mg/day
     Route: 065
  2. RISPERIDONE [Suspect]
     Indication: ABNORMAL BEHAVIOUR
  3. RISPERIDONE [Suspect]
     Indication: AUTISM
     Dosage: 0.5 mg, Unk
     Route: 065
  4. RISPERIDONE [Suspect]
     Indication: ABNORMAL BEHAVIOUR
  5. METHYLPHENIDATE [Suspect]
     Indication: AUTISM
     Route: 065
  6. METHYLPHENIDATE [Suspect]
     Indication: ABNORMAL BEHAVIOUR
  7. RISPERIDONE [Concomitant]
     Indication: AUTISM
     Dosage: 0.25 mg/day
     Route: 065
  8. RISPERIDONE [Concomitant]
     Indication: ABNORMAL BEHAVIOUR
  9. RISPERIDONE [Concomitant]
     Indication: AUTISM
     Dosage: 0.5mg/day
     Route: 065
  10. RISPERIDONE [Concomitant]
     Indication: ABNORMAL BEHAVIOUR
  11. RISPERIDONE [Concomitant]
     Indication: AUTISM
     Dosage: 0.25mg/day
     Route: 065
  12. RISPERIDONE [Concomitant]
     Indication: ABNORMAL BEHAVIOUR
  13. HALLOPERIDOL [Concomitant]
     Indication: AUTISM
     Route: 065
  14. HALLOPERIDOL [Concomitant]
     Indication: ABNORMAL BEHAVIOUR

REACTIONS (2)
  - Hepatic function abnormal [Recovered/Resolved]
  - Agitation [Recovered/Resolved]
